FAERS Safety Report 21335172 (Version 2)
Quarter: 2024Q3

REPORT INFORMATION
  Report Type: Spontaneous
  Country: JP (occurrence: JP)
  Receive Date: 20220915
  Receipt Date: 20240914
  Transmission Date: 20241016
  Serious: Yes (Other)
  Sender: TEVA
  Company Number: JP-ALLERGAN-2229471US

PATIENT
  Sex: Male

DRUGS (4)
  1. BEZAFIBRATE [Suspect]
     Active Substance: BEZAFIBRATE
     Indication: Primary biliary cholangitis
     Route: 048
  2. BEZAFIBRATE [Suspect]
     Active Substance: BEZAFIBRATE
     Indication: Primary biliary cholangitis
     Route: 048
  3. URSODIOL [Suspect]
     Active Substance: URSODIOL
     Indication: Primary biliary cholangitis
     Route: 048
  4. PEMAFIBRATE [Concomitant]
     Active Substance: PEMAFIBRATE
     Indication: Primary biliary cholangitis
     Route: 065

REACTIONS (2)
  - Hepatic cirrhosis [Unknown]
  - Chronic kidney disease [Recovering/Resolving]
